FAERS Safety Report 7289388-4 (Version None)
Quarter: 2011Q1

REPORT INFORMATION
  Report Type: 
  Country: None (occurrence: None)
  Receive Date: 20110211
  Receipt Date: 20110209
  Transmission Date: 20110831
  Serious: Yes (Death)
  Sender: FDA-Public Use
  Company Number: JO-PFIZER INC-2011028757

PATIENT
  Sex: Male

DRUGS (2)
  1. TIGECYCLINE [Suspect]
     Indication: SOFT TISSUE INFECTION
     Dosage: 50 MG, 2X/DAY
     Route: 042
     Dates: start: 20110203
  2. TIGECYCLINE [Suspect]
     Indication: ABDOMINAL INFECTION
     Dosage: 100 MG, 1X/DAY
     Route: 042
     Dates: start: 20110202, end: 20110202

REACTIONS (1)
  - DEATH [None]
